FAERS Safety Report 11283935 (Version 1)
Quarter: 2015Q3

REPORT INFORMATION
  Report Type: Spontaneous
  Country: IN (occurrence: IN)
  Receive Date: 20150720
  Receipt Date: 20150720
  Transmission Date: 20151125
  Serious: Yes (Other)
  Sender: FDA-Public Use
  Company Number: IN-SA-2015SA102342

PATIENT
  Age: 56 Year
  Sex: Male

DRUGS (1)
  1. CHLOROQUINE [Suspect]
     Active Substance: CHLOROQUINE\CHLOROQUINE PHOSPHATE
     Indication: SYSTEMIC LUPUS ERYTHEMATOSUS
     Route: 065

REACTIONS (7)
  - Acquired pigmented retinopathy [Not Recovered/Not Resolved]
  - Colour vision tests abnormal red-green [Not Recovered/Not Resolved]
  - Optic atrophy [Unknown]
  - Maculopathy [Not Recovered/Not Resolved]
  - Product use issue [Unknown]
  - Visual acuity reduced [Not Recovered/Not Resolved]
  - Visual impairment [Not Recovered/Not Resolved]
